FAERS Safety Report 4552768-1 (Version None)
Quarter: 2005Q1

REPORT INFORMATION
  Report Type: 
  Country: None (occurrence: None)
  Receive Date: 20050111
  Receipt Date: 20050111
  Transmission Date: 20050727
  Serious: Yes (Other)
  Sender: FDA-Public Use
  Company Number: None

PATIENT
  Age: 42 Year
  Sex: Female

DRUGS (16)
  1. OMEPRAZOLE [Suspect]
     Indication: GASTROOESOPHAGEAL REFLUX DISEASE
     Dosage: ONE CAP TWICE DAILY   STARTED GENERIC 1-2 WEEKS BEFORE SYMPTOMS RETURNED
  2. OMEPRAZOLE [Suspect]
     Indication: ULCER
     Dosage: ONE CAP TWICE DAILY   STARTED GENERIC 1-2 WEEKS BEFORE SYMPTOMS RETURNED
  3. CYCLOBENZAPRINE [Concomitant]
  4. ASPIRIN [Concomitant]
  5. MULTI-VITAMIN [Concomitant]
  6. FLONASE [Concomitant]
  7. PREDNISONE [Concomitant]
  8. SYNTHROID [Concomitant]
  9. CALCIUM GLUCONATE [Concomitant]
  10. VIT E [Concomitant]
  11. REGLAN [Concomitant]
  12. IMITREX [Concomitant]
  13. MIACALCIN [Concomitant]
  14. LORAZEPAM [Concomitant]
  15. OXYCONTIN [Concomitant]
  16. REGLAN [Concomitant]

REACTIONS (3)
  - DRUG EFFECT DECREASED [None]
  - GASTROOESOPHAGEAL REFLUX DISEASE [None]
  - PHARMACEUTICAL PRODUCT COMPLAINT [None]
